FAERS Safety Report 6480631-8 (Version None)
Quarter: 2009Q4

REPORT INFORMATION
  Report Type: 
  Country: None (occurrence: None)
  Receive Date: 20091208
  Receipt Date: 20091201
  Transmission Date: 20100525
  Serious: Yes (Other)
  Sender: FDA-Public Use
  Company Number: US-PFIZER INC-2009304909

PATIENT
  Sex: Female
  Weight: 95.238 kg

DRUGS (9)
  1. LYRICA [Suspect]
     Indication: NERVE COMPRESSION
     Dosage: 300 MG, UNK
  2. LYRICA [Suspect]
     Dosage: 100 MG, 1X/DAY
     Route: 048
     Dates: start: 20070401
  3. ULTRAM [Concomitant]
     Indication: NEURALGIA
     Dosage: 300 MG, 1X/DAY
     Route: 048
  4. LIPITOR [Concomitant]
     Indication: BLOOD CHOLESTEROL INCREASED
     Dosage: 20 MG, 1X/DAY
     Route: 048
     Dates: start: 19990101
  5. ALDACTONE [Concomitant]
     Indication: BLOOD TESTOSTERONE INCREASED
     Dosage: 100 MG, 2X/DAY
     Route: 048
  6. METFORMIN [Concomitant]
     Indication: TYPE 1 DIABETES MELLITUS
     Dosage: 1000 MG, 2X/DAY
     Route: 048
  7. ACETYLSALICYLIC ACID [Concomitant]
     Dosage: 81 MG, 1X/DAY
     Route: 048
  8. VITAMIN D [Concomitant]
     Dosage: UNK
  9. CLARITIN [Concomitant]
     Indication: HYPERSENSITIVITY
     Dosage: UNK

REACTIONS (6)
  - ANGER [None]
  - DEPRESSION [None]
  - FEELING ABNORMAL [None]
  - INSOMNIA [None]
  - LIMB OPERATION [None]
  - MENSTRUAL DISORDER [None]
